FAERS Safety Report 7947024-5 (Version None)
Quarter: 2011Q4

REPORT INFORMATION
  Report Type: 
  Country: None (occurrence: None)
  Receive Date: 20111129
  Receipt Date: 20110721
  Transmission Date: 20120403
  Serious: No
  Sender: FDA-Public Use
  Company Number: US-ASTRAZENECA-2011SE43859

PATIENT
  Age: 62 Year
  Sex: Male

DRUGS (1)
  1. VIMOVO [Suspect]
     Indication: HEADACHE
     Dosage: 500/20 MG, DAILY
     Route: 048

REACTIONS (2)
  - DRUG INEFFECTIVE FOR UNAPPROVED INDICATION [None]
  - HEADACHE [None]
